FAERS Safety Report 12200329 (Version 2)
Quarter: 2016Q2

REPORT INFORMATION
  Report Type: Spontaneous
  Country: US (occurrence: US)
  Receive Date: 20160322
  Receipt Date: 20160408
  Transmission Date: 20160815
  Serious: No
  Sender: FDA-Public Use
  Company Number: US-B.I. PHARMACEUTICALS,INC./RIDGEFIELD-2016-BI-12750BP

PATIENT
  Sex: Female
  Weight: 56.7 kg

DRUGS (2)
  1. LEVOFLOXICIN [Concomitant]
     Active Substance: LEVOFLOXACIN
     Indication: PRODUCT USED FOR UNKNOWN INDICATION
     Route: 065
  2. SPIRIVA [Suspect]
     Active Substance: TIOTROPIUM BROMIDE MONOHYDRATE
     Indication: PNEUMONIA
     Dosage: 18 MCG
     Route: 055
     Dates: start: 20160225, end: 20160227

REACTIONS (11)
  - Eye pain [Unknown]
  - Dyspepsia [Not Recovered/Not Resolved]
  - Constipation [Not Recovered/Not Resolved]
  - Headache [Unknown]
  - Vision blurred [Recovered/Resolved]
  - Dysuria [Not Recovered/Not Resolved]
  - Eye colour change [Unknown]
  - Off label use [Unknown]
  - Throat irritation [Unknown]
  - Dyspnoea [Recovered/Resolved]
  - Mental disorder [Unknown]
